FAERS Safety Report 3932272 (Version 2)
Quarter: 2018Q4

REPORT INFORMATION
  Report Type: Spontaneous
  Country: IT (occurrence: IT)
  Receive Date: 20030422
  Receipt Date: 20181106
  Transmission Date: 20190205
  Serious: Yes (Other)
  Sender: FDA-Public Use
  Company Number: IT-ROCHE-335965

PATIENT
  Age: 61 Year
  Sex: Male

DRUGS (2)
  1. ROFERON-A [Suspect]
     Active Substance: INTERFERON ALFA-2A
     Indication: CHRONIC HEPATITIS C
     Route: 058
  2. ROFERON-A [Suspect]
     Active Substance: INTERFERON ALFA-2A
     Route: 058

REACTIONS (1)
  - Pernicious anaemia [Recovered/Resolved]
